FAERS Safety Report 18935412 (Version 2)
Quarter: 2021Q2

REPORT INFORMATION
  Report Type: Report from Study
  Country: CO (occurrence: CO)
  Receive Date: 20210224
  Receipt Date: 20210407
  Transmission Date: 20210717
  Serious: Yes (Hospitalization)
  Sender: FDA-Public Use
  Company Number: CO-INCYTE CORPORATION-2021IN001636

PATIENT

DRUGS (4)
  1. ATORVASTATIN [Concomitant]
     Active Substance: ATORVASTATIN
     Indication: BLOOD CHOLESTEROL
     Dosage: 40 MG, QD (STARTED 10 YEARS AGO)
     Route: 048
  2. JAKAVI [Suspect]
     Active Substance: RUXOLITINIB
     Dosage: 1 DF, QD
     Route: 048
     Dates: start: 20210222
  3. JAKAVI [Suspect]
     Active Substance: RUXOLITINIB
     Indication: MYELOFIBROSIS
     Dosage: 1 DF, Q12H
     Route: 048
     Dates: start: 201905
  4. ENALAPRIL [Concomitant]
     Active Substance: ENALAPRIL
     Indication: HYPERTENSION
     Dosage: 5 MG, Q12H (STARTED 10 YEARS AGO)
     Route: 048

REACTIONS (13)
  - Diarrhoea [Recovering/Resolving]
  - Haemoglobin decreased [Unknown]
  - Pyrexia [Recovering/Resolving]
  - Respiratory tract infection fungal [Recovered/Resolved]
  - Immunodeficiency [Unknown]
  - Inappropriate schedule of product administration [Unknown]
  - Acute leukaemia [Recovering/Resolving]
  - Discouragement [Unknown]
  - Platelet count decreased [Unknown]
  - Fluid retention [Unknown]
  - Cardiomegaly [Unknown]
  - Red blood cell count decreased [Unknown]
  - Myelofibrosis [Unknown]

NARRATIVE: CASE EVENT DATE: 202008
